FAERS Safety Report 4655572-9 (Version None)
Quarter: 2005Q2

REPORT INFORMATION
  Report Type: 
  Country: None (occurrence: None)
  Receive Date: 20050505
  Receipt Date: 20050421
  Transmission Date: 20051028
  Serious: Yes (Other)
  Sender: FDA-Public Use
  Company Number: 2005064205

PATIENT
  Age: 57 Year
  Sex: Female

DRUGS (3)
  1. BEXTRA [Suspect]
     Indication: SPONDYLITIS
     Dosage: 10 MG (10 MG, 1 IN 1 D), ORAL
     Route: 048
     Dates: start: 20020101
  2. BISOPROLOL FUMARATE AND HYDROCHLOROTHIAZIDE [Concomitant]
  3. NAPROXEN SODIUM [Concomitant]

REACTIONS (9)
  - AORTIC DISORDER [None]
  - CHEST X-RAY ABNORMAL [None]
  - DYSPNOEA [None]
  - ENDODONTIC PROCEDURE [None]
  - HAEMORRHAGE [None]
  - LUNG NEOPLASM [None]
  - PALPITATIONS [None]
  - PRURITUS [None]
  - SKIN EXFOLIATION [None]
